FAERS Safety Report 8074431-5 (Version None)
Quarter: 2012Q1

REPORT INFORMATION
  Report Type: 
  Country: None (occurrence: None)
  Receive Date: 20120126
  Receipt Date: 20120123
  Transmission Date: 20120608
  Serious: Yes (Other)
  Sender: FDA-Public Use
  Company Number: AU-GLAXOSMITHKLINE-B0777381A

PATIENT
  Sex: Female

DRUGS (2)
  1. XELODA [Suspect]
     Indication: PRODUCT USED FOR UNKNOWN INDICATION
     Route: 065
  2. TYKERB [Suspect]
     Indication: PRODUCT USED FOR UNKNOWN INDICATION
     Route: 065

REACTIONS (4)
  - NAIL DISORDER [None]
  - SKIN TOXICITY [None]
  - NAIL TOXICITY [None]
  - SKIN EXFOLIATION [None]
